FAERS Safety Report 8941013 (Version 2)
Quarter: 2012Q4

REPORT INFORMATION
  Report Type: Report from Study
  Country: NL (occurrence: NL)
  Receive Date: 20121203
  Receipt Date: 20121213
  Transmission Date: 20130627
  Serious: Yes (Hospitalization)
  Sender: FDA-Public Use
  Company Number: NL-ABBOTT-12P-114-1015484-00

PATIENT
  Age: 0 Year
  Sex: Male
  Weight: 7.92 kg

DRUGS (3)
  1. SYNAGIS [Suspect]
     Indication: PREMATURE BABY
     Dosage: 15 mg/kg body weight/once montly
     Dates: start: 201209, end: 201209
  2. SYNAGIS [Suspect]
     Dates: start: 20121001, end: 20121001
  3. SYNAGIS [Suspect]
     Dates: start: 20121029

REACTIONS (4)
  - Bronchial secretion retention [Not Recovered/Not Resolved]
  - Malaise [Unknown]
  - Respiratory syncytial virus infection [Unknown]
  - Cough [Not Recovered/Not Resolved]
